FAERS Safety Report 6752505-6 (Version None)
Quarter: 2010Q2

REPORT INFORMATION
  Report Type: 
  Country: None (occurrence: None)
  Receive Date: 20100601
  Receipt Date: 20100601
  Transmission Date: 20101027
  Serious: Yes (Hospitalization)
  Sender: FDA-Public Use
  Company Number: None

PATIENT
  Sex: Female
  Weight: 63.8 kg

DRUGS (1)
  1. BACTRIM DS [Suspect]

REACTIONS (2)
  - DYSKINESIA [None]
  - MENTAL IMPAIRMENT [None]
